FAERS Safety Report 7445135-4 (Version None)
Quarter: 2011Q2

REPORT INFORMATION
  Report Type: 
  Country: None (occurrence: None)
  Receive Date: 20110429
  Receipt Date: 20110420
  Transmission Date: 20111010
  Serious: Yes (Hospitalization, Other)
  Sender: FDA-Public Use
  Company Number: DE-PFIZER INC-2011091916

PATIENT
  Age: 77 Year
  Sex: Female
  Weight: 100 kg

DRUGS (14)
  1. AMLODIPINE [Concomitant]
     Indication: HYPERTENSION
     Dosage: 5 MG, 2 IN 1 D
     Route: 048
     Dates: start: 20091101
  2. OXYGESIC [Concomitant]
     Dosage: 6 CAPSULES MAXIMUM
     Route: 048
     Dates: start: 20100329, end: 20100329
  3. PANTOZOL [Suspect]
     Indication: PROPHYLAXIS AGAINST GASTROINTESTINAL ULCER
     Dosage: 40 MG, 1 IN 1 D
     Route: 048
     Dates: start: 20100325
  4. EMBOLEX [Concomitant]
     Indication: THROMBOSIS PROPHYLAXIS
     Dosage: 3000 IU, 1 IN 1 D
     Route: 058
     Dates: start: 20100328, end: 20100427
  5. ENAHEXAL [Concomitant]
     Indication: HYPERTENSION
     Dosage: 10 MG, 1 IN 1 D
     Route: 048
     Dates: end: 20100409
  6. LEVOTHYROXINE SODIUM [Concomitant]
     Indication: HYPOTHYROIDISM
     Dosage: 150 UG, 1X/DAY
     Route: 048
  7. METFORMIN [Concomitant]
     Indication: DIABETES MELLITUS
     Dosage: 425 MG, 1 IN 1 D
     Route: 048
     Dates: end: 20100409
  8. CEFUROXIME [Interacting]
     Indication: INFECTION PROPHYLAXIS
     Dosage: 4500 MG, 3 IN 1 D
     Route: 042
     Dates: start: 20100329, end: 20100407
  9. ARCOXIA [Concomitant]
     Indication: PAIN
     Dosage: 90 MG, 1 IN 1 D
     Route: 048
     Dates: start: 20100329, end: 20100409
  10. ACETAMINOPHEN [Concomitant]
     Indication: PAIN
     Dosage: 500 MG, 3X/DAY
     Route: 048
  11. OXYGESIC [Concomitant]
     Indication: PAIN
     Dosage: 10 MG, 2X/DAY
     Route: 048
     Dates: start: 20100329, end: 20100404
  12. MCP TROPFEN [Concomitant]
     Indication: NAUSEA
     Dosage: 20 GTT, 3X/DAY
     Route: 048
     Dates: start: 20100404, end: 20100409
  13. HCT-BETA [Concomitant]
     Indication: HYPERTENSION
     Dosage: 25 MG, 1 IN 1 D
     Route: 048
     Dates: end: 20100502
  14. VOLTAREN [Concomitant]
     Indication: PAIN
     Dosage: 75 MG, 2 IN 1 D
     Route: 048
     Dates: start: 20050101, end: 20090328

REACTIONS (3)
  - RENAL FAILURE ACUTE [None]
  - DRUG INTERACTION [None]
  - PSEUDOMEMBRANOUS COLITIS [None]
